FAERS Safety Report 6570995-9 (Version None)
Quarter: 2010Q1

REPORT INFORMATION
  Report Type: 
  Country: None (occurrence: None)
  Receive Date: 20100204
  Receipt Date: 20100202
  Transmission Date: 20100710
  Serious: Yes (Death)
  Sender: FDA-Public Use
  Company Number: IT-ROCHE-676234

PATIENT
  Sex: Female
  Weight: 52 kg

DRUGS (12)
  1. BEVACIZUMAB [Suspect]
     Indication: NON-SMALL CELL LUNG CANCER
     Dosage: FREQUENCY AS 21
     Route: 042
     Dates: start: 20091030, end: 20091211
  2. PEMETREXED [Suspect]
     Indication: NON-SMALL CELL LUNG CANCER
     Dosage: FREQUENCY AS 21, PERMANENTLY DISCONTINUED
     Route: 042
     Dates: start: 20091030, end: 20091211
  3. CISPLATIN [Suspect]
     Indication: NON-SMALL CELL LUNG CANCER
     Dosage: FREQUENCY 21
     Route: 042
     Dates: start: 20091030, end: 20091211
  4. BETA-BLOCKER [Concomitant]
     Dates: start: 20050101
  5. ZOLOFT [Concomitant]
     Dates: start: 20090101
  6. LANSOX [Concomitant]
     Dates: start: 20050101
  7. VALPRESSION [Concomitant]
     Dates: start: 20050101
  8. EUTIROX [Concomitant]
     Dates: start: 20000101
  9. LEVOTUSS [Concomitant]
     Dates: start: 20090801
  10. LASIX [Concomitant]
     Dates: start: 20050101
  11. FOLIC ACID [Concomitant]
     Dates: start: 20011012
  12. VITAMIN B-12 [Concomitant]
     Dates: start: 20011012

REACTIONS (1)
  - DEATH [None]
